FAERS Safety Report 9636485 (Version 1)
Quarter: 2013Q4

REPORT INFORMATION
  Report Type: Spontaneous
  Country: BE (occurrence: BE)
  Receive Date: 20131021
  Receipt Date: 20131021
  Transmission Date: 20140711
  Serious: Yes (Death, Hospitalization, Other)
  Sender: FDA-Public Use
  Company Number: BE-ASTRAZENECA-2013SE76693

PATIENT
  Age: 68 Year
  Sex: Male

DRUGS (4)
  1. BRILIQUE [Suspect]
     Indication: ACUTE CORONARY SYNDROME
     Dosage: LOADING DOSE: 2X90 MG
     Route: 048
     Dates: start: 20131008
  2. ACETYLSALICYLIC ACID [Interacting]
     Route: 065
  3. TICLID [Interacting]
     Route: 065
  4. ARIXTRA [Concomitant]

REACTIONS (4)
  - Drug interaction [Fatal]
  - Haemorrhage [Fatal]
  - Pulmonary haemorrhage [Fatal]
  - Multi-organ failure [Fatal]
